FAERS Safety Report 18186582 (Version 1)
Quarter: 2020Q3

REPORT INFORMATION
  Report Type: Spontaneous
  Country: US (occurrence: US)
  Receive Date: 20200824
  Receipt Date: 20200824
  Transmission Date: 20201103
  Serious: No
  Sender: FDA-Public Use
  Company Number: None

PATIENT
  Age: 40 Year
  Sex: Male
  Weight: 62.6 kg

DRUGS (4)
  1. MESALAMINE 1000MG QID [Concomitant]
  2. PREDNISONE. [Suspect]
     Active Substance: PREDNISONE
     Indication: CROHN^S DISEASE
     Route: 048
     Dates: start: 20200613, end: 20200730
  3. ESOMEPRAZOLE 40MGBID [Concomitant]
  4. AMIODARONE 200MG BID [Concomitant]

REACTIONS (3)
  - Agitation [None]
  - Therapy change [None]
  - Behaviour disorder [None]

NARRATIVE: CASE EVENT DATE: 20200623
